FAERS Safety Report 8039599-5 (Version None)
Quarter: 2012Q1

REPORT INFORMATION
  Report Type: 
  Country: None (occurrence: None)
  Receive Date: 20120111
  Receipt Date: 20111219
  Transmission Date: 20120608
  Serious: No
  Sender: FDA-Public Use
  Company Number: US-AMGEN-USASP2011067593

PATIENT
  Age: 12 Year
  Sex: Male

DRUGS (1)
  1. ENBREL [Suspect]
     Indication: FAMILIAL MEDITERRANEAN FEVER
     Dosage: 50 MG, QWK
     Dates: start: 20110307

REACTIONS (4)
  - THIRST [None]
  - ABDOMINAL PAIN UPPER [None]
  - VOMITING [None]
  - PYREXIA [None]
